FAERS Safety Report 5738956-7 (Version None)
Quarter: 2008Q2

REPORT INFORMATION
  Report Type: 
  Country: None (occurrence: None)
  Receive Date: 20080515
  Receipt Date: 20080507
  Transmission Date: 20081010
  Serious: Yes (Other)
  Sender: FDA-Public Use
  Company Number: US-ASTRAZENECA-2008UW09435

PATIENT
  Age: 74 Year
  Sex: Female
  Weight: 73 kg

DRUGS (7)
  1. CRESTOR [Suspect]
     Indication: BLOOD CHOLESTEROL INCREASED
     Route: 048
     Dates: end: 20080502
  2. SYNTHROID [Concomitant]
  3. ATENOLOL [Concomitant]
  4. ZETIA [Concomitant]
  5. XANAX [Concomitant]
  6. ASPIRIN [Concomitant]
  7. VITAMINS [Concomitant]

REACTIONS (7)
  - ARTHRALGIA [None]
  - FATIGUE [None]
  - GAIT DISTURBANCE [None]
  - MUSCULOSKELETAL PAIN [None]
  - PAIN IN EXTREMITY [None]
  - UPPER RESPIRATORY TRACT INFECTION [None]
  - WEIGHT DECREASED [None]
